FAERS Safety Report 26208420 (Version 1)
Quarter: 2025Q4

REPORT INFORMATION
  Report Type: Spontaneous
  Country: US (occurrence: None)
  Receive Date: 20251226
  Receipt Date: 20251226
  Transmission Date: 20260118
  Serious: Yes (Hospitalization)
  Sender: FDA-CTU
  Company Number: None

PATIENT
  Sex: Female

DRUGS (11)
  1. LENALIDOMIDE [Suspect]
     Active Substance: LENALIDOMIDE
     Indication: Plasma cell myeloma
     Dosage: FREQUENCY : DAILY;
     Route: 048
     Dates: start: 20250212
  2. ASPIRIN TAB 325MG EC [Concomitant]
  3. CALTRATE+D TAB 600-800 [Concomitant]
  4. CLOBETASOL OIN 0.05^% [Concomitant]
  5. CRANBERRY/ CAP VIT C [Concomitant]
  6. DEXAMETHASONE [Concomitant]
     Active Substance: DEXAMETHASONE
  7. ELIOUIS TAB 2.5MG [Concomitant]
  8. ESTRACE VAG CRE 0.01% [Concomitant]
  9. LENALIDOMIDE [Concomitant]
     Active Substance: LENALIDOMIDE
  10. LEXAPRO TAB 20MG [Concomitant]
  11. LIDODERM DIS5% [Concomitant]

REACTIONS (2)
  - Gastric ulcer [None]
  - Anaemia [None]
